FAERS Safety Report 5014082-X (Version None)
Quarter: 2006Q2

REPORT INFORMATION
  Report Type: 
  Country: None (occurrence: None)
  Receive Date: 20060414
  Receipt Date: 20060130
  Transmission Date: 20061013
  Serious: No
  Sender: FDA-Public Use
  Company Number: 2006SP000555

PATIENT
  Age: 62 Year
  Sex: Male
  Weight: 80.7403 kg

DRUGS (6)
  1. LUNESTA [Suspect]
     Indication: INSOMNIA
     Dosage: 3 MG;HS;ORAL
     Route: 048
     Dates: start: 20060101, end: 20060101
  2. AMBIEN [Concomitant]
  3. ALLEGRA [Concomitant]
  4. PLENDIL [Concomitant]
  5. NAPROSYN [Concomitant]
  6. RELAFEN [Concomitant]

REACTIONS (1)
  - DYSGEUSIA [None]
